FAERS Safety Report 4591478-1 (Version None)
Quarter: 2005Q1

REPORT INFORMATION
  Report Type: 
  Country: None (occurrence: None)
  Receive Date: 20050225
  Receipt Date: 20041007
  Transmission Date: 20050727
  Serious: Yes (Hospitalization)
  Sender: FDA-Public Use
  Company Number: JP-ABBOTT-04P-087-0276635-00

PATIENT
  Sex: Male

DRUGS (11)
  1. KALETRA [Suspect]
     Indication: HIV INFECTION
     Route: 048
     Dates: start: 20030417
  2. ENALAPRIL MALEATE [Suspect]
     Indication: HYPERTENSION
     Route: 048
     Dates: start: 20010401, end: 20030512
  3. AMLODIPINE BESYLATE [Suspect]
     Indication: HYPERTENSION
     Route: 048
     Dates: start: 20010401, end: 20030512
  4. AMLODIPINE BESYLATE [Suspect]
     Route: 048
     Dates: start: 20030513
  5. FREEZE-DRIED HUMAN BLOOD COAGULATION FACTOR IX [Concomitant]
     Indication: HAEMORRHAGE
     Route: 042
     Dates: start: 20010401
  6. LAMIVUDINE [Concomitant]
     Indication: HIV INFECTION
     Route: 048
     Dates: start: 20030417
  7. STAVUDINE [Concomitant]
     Indication: HIV INFECTION
     Route: 048
     Dates: start: 20030417
  8. SPIRONOLACTONE [Concomitant]
     Indication: OEDEMA
     Route: 048
     Dates: start: 20030214
  9. FUROSEMIDE [Concomitant]
     Indication: OEDEMA
     Route: 048
     Dates: start: 20030214
  10. INTERFERON ALFA-2B [Concomitant]
     Indication: HEPATITIS C
     Route: 030
     Dates: start: 20030430
  11. LANSOPRAZOLE [Concomitant]
     Indication: REFLUX OESOPHAGITIS
     Route: 048
     Dates: start: 20030605

REACTIONS (2)
  - DRUG LEVEL INCREASED [None]
  - SINUS BRADYCARDIA [None]
